FAERS Safety Report 6442799-9 (Version None)
Quarter: 2009Q4

REPORT INFORMATION
  Report Type: 
  Country: None (occurrence: None)
  Receive Date: 20091117
  Receipt Date: 20091110
  Transmission Date: 20100525
  Serious: Yes (Hospitalization)
  Sender: FDA-Public Use
  Company Number: GB-ROCHE-668060

PATIENT
  Age: 7 Year
  Sex: Male

DRUGS (2)
  1. TAMIFLU [Suspect]
     Dosage: DOSE REPORTED AS UNCERTAIN.
     Route: 065
     Dates: start: 20091024
  2. PARACETAMOL [Concomitant]

REACTIONS (1)
  - CONVULSION [None]
